FAERS Safety Report 8162088-4 (Version None)
Quarter: 2012Q1

REPORT INFORMATION
  Report Type: 
  Country: None (occurrence: None)
  Receive Date: 20120224
  Receipt Date: 20110818
  Transmission Date: 20120608
  Serious: No
  Sender: FDA-Public Use
  Company Number: US-BRISTOL-MYERS SQUIBB COMPANY-15983588

PATIENT
  Age: 63 Year
  Sex: Female
  Weight: 85 kg

DRUGS (7)
  1. MICARDIS [Concomitant]
     Dosage: 1 DF: 80/12.5
  2. SYNTHROID [Concomitant]
  3. ZOLOFT [Concomitant]
  4. LOVASTATIN [Concomitant]
  5. LANTUS [Concomitant]
     Dosage: EVENING 35-40 MG
  6. NOVOLOG [Concomitant]
     Dosage: 1 DF:15 UNITS IN MORNING/EVENING
  7. GLUCOPHAGE [Suspect]

REACTIONS (3)
  - COUGH [None]
  - NASOPHARYNGITIS [None]
  - BLOOD GLUCOSE INCREASED [None]
